FAERS Safety Report 15824553 (Version 6)
Quarter: 2019Q2

REPORT INFORMATION
  Report Type: Spontaneous
  Country: US (occurrence: US)
  Receive Date: 20190115
  Receipt Date: 20190617
  Transmission Date: 20190711
  Serious: No
  Sender: FDA-Public Use
  Company Number: US-TEVA-2019-US-996519

PATIENT
  Age: 61 Year
  Sex: Female

DRUGS (19)
  1. BIOTIN [Concomitant]
     Active Substance: BIOTIN
  2. PHENOBARBITAL. [Concomitant]
     Active Substance: PHENOBARBITAL
     Dosage: HS
  3. ACIDOPHILUS [Concomitant]
     Active Substance: LACTOBACILLUS ACIDOPHILUS
  4. DULOXETINE. [Concomitant]
     Active Substance: DULOXETINE
     Dosage: 120 UNKNOWN DAILY;
  5. PROLIA [Concomitant]
     Active Substance: DENOSUMAB
     Route: 058
  6. COQ10 [Concomitant]
     Active Substance: UBIDECARENONE
     Dosage: 400 MILLIGRAM DAILY;
  7. RIZATRIPTAN. [Concomitant]
     Active Substance: RIZATRIPTAN
  8. NALTREXONE [Concomitant]
     Active Substance: NALTREXONE
     Dosage: LOW DOSE, HS
  9. CLONAZEPAM. [Concomitant]
     Active Substance: CLONAZEPAM
     Dosage: 3 MILLIGRAM DAILY;
  10. AJOVY [Suspect]
     Active Substance: FREMANEZUMAB-VFRM
     Indication: MIGRAINE
     Route: 058
     Dates: start: 201810
  11. FLONASE [Concomitant]
     Active Substance: FLUTICASONE PROPIONATE
     Dosage: AM
  12. FAMOTIDINE. [Concomitant]
     Active Substance: FAMOTIDINE
     Dosage: 80 MILLIGRAM DAILY;
  13. MAGNESIUM [Concomitant]
     Active Substance: MAGNESIUM
     Dosage: 500 MILLIGRAM DAILY;
  14. VISTARIL [Concomitant]
     Active Substance: HYDROXYZINE PAMOATE
  15. BIT B2 [Concomitant]
     Dosage: 400 UNKNOWN DAILY;
  16. PROAIR HFA [Concomitant]
     Active Substance: ALBUTEROL SULFATE
  17. ASMANEX [Concomitant]
     Active Substance: MOMETASONE FUROATE
  18. AMYTRYPTYLLINE [Concomitant]
     Dosage: 36000 MILLIGRAM DAILY;
  19. VITAMIN D3 [Concomitant]
     Active Substance: CHOLECALCIFEROL
     Dosage: 5000 MILLIGRAM DAILY;

REACTIONS (3)
  - Dry mouth [Recovered/Resolved with Sequelae]
  - Hot flush [Not Recovered/Not Resolved]
  - Constipation [Recovered/Resolved with Sequelae]

NARRATIVE: CASE EVENT DATE: 201810
